FAERS Safety Report 6043773-7 (Version None)
Quarter: 2009Q1

REPORT INFORMATION
  Report Type: 
  Country: None (occurrence: None)
  Receive Date: 20090120
  Receipt Date: 20090112
  Transmission Date: 20090719
  Serious: Yes (Hospitalization, Other)
  Sender: FDA-Public Use
  Company Number: US-AMGEN-STX239400

PATIENT
  Sex: Female
  Weight: 84.9 kg

DRUGS (17)
  1. ENBREL [Suspect]
     Indication: PSORIATIC ARTHROPATHY
     Route: 058
     Dates: start: 20051014, end: 20070821
  2. ARAVA [Concomitant]
     Route: 048
     Dates: start: 20040101, end: 20070801
  3. SIMVASTATIN [Concomitant]
     Route: 048
  4. ACTOS [Concomitant]
     Route: 048
  5. DITROPAN [Concomitant]
     Route: 048
  6. SYNTHROID [Concomitant]
     Route: 048
  7. AMARYL [Concomitant]
     Route: 048
  8. PROZAC [Concomitant]
     Route: 048
  9. ZETIA [Concomitant]
     Route: 048
  10. CYPROHEPTADINE HCL [Concomitant]
     Route: 048
  11. LOMOTIL [Concomitant]
  12. PERCOCET [Concomitant]
  13. ATIVAN [Concomitant]
  14. VYTORIN [Concomitant]
  15. WELLBUTRIN [Concomitant]
  16. OXAPROZIN [Concomitant]
  17. TRAMADOL HCL [Concomitant]

REACTIONS (15)
  - ASTHENIA [None]
  - BRAIN NEOPLASM [None]
  - CONJUNCTIVITIS [None]
  - DEMYELINATION [None]
  - DEPRESSION [None]
  - FALL [None]
  - GAIT DISTURBANCE [None]
  - HEARING IMPAIRED [None]
  - MUSCLE SPASMS [None]
  - MUSCLE TIGHTNESS [None]
  - MYALGIA [None]
  - PARKINSON'S DISEASE [None]
  - QUADRIPARESIS [None]
  - URINARY INCONTINENCE [None]
  - URINARY TRACT INFECTION [None]
